FAERS Safety Report 16498074 (Version 1)
Quarter: 2019Q2

REPORT INFORMATION
  Report Type: Spontaneous
  Country: CA (occurrence: CA)
  Receive Date: 20190628
  Receipt Date: 20190628
  Transmission Date: 20190711
  Serious: Yes (Hospitalization)
  Sender: FDA-Public Use
  Company Number: PHHY2019CA144646

PATIENT
  Age: 64 Year
  Sex: Female

DRUGS (9)
  1. NILOTINIB [Suspect]
     Active Substance: NILOTINIB
     Dosage: 300 MG, BID
     Route: 065
     Dates: start: 201702
  2. SPRYCEL [Suspect]
     Active Substance: DASATINIB
     Indication: CHRONIC MYELOID LEUKAEMIA
     Dosage: UNK
     Route: 065
     Dates: start: 20141116
  3. PONATINIB [Suspect]
     Active Substance: PONATINIB
     Indication: CHRONIC MYELOID LEUKAEMIA
     Dosage: 15 MG, QD
     Route: 065
     Dates: start: 20181011
  4. BOSUTINIB [Suspect]
     Active Substance: BOSUTINIB
     Indication: CHRONIC MYELOID LEUKAEMIA
     Dosage: UNK
     Dates: start: 201402
  5. SPRYCEL [Suspect]
     Active Substance: DASATINIB
     Dosage: 60 MG, UNK
     Route: 065
     Dates: start: 20141116, end: 20171224
  6. PONATINIB [Suspect]
     Active Substance: PONATINIB
     Dosage: 15 MG, EVERY OTHER DAY
     Route: 065
  7. NILOTINIB [Suspect]
     Active Substance: NILOTINIB
     Indication: CHRONIC MYELOID LEUKAEMIA
     Dosage: UNK
     Route: 065
     Dates: start: 201010
  8. DASATINIB. [Suspect]
     Active Substance: DASATINIB
     Indication: CHRONIC MYELOID LEUKAEMIA
     Dosage: UNK
     Route: 065
  9. BOSUTINIB [Suspect]
     Active Substance: BOSUTINIB
     Dosage: 300 MG, UNK
     Dates: start: 201407

REACTIONS (7)
  - Pleural effusion [Not Recovered/Not Resolved]
  - Abdominal pain [Unknown]
  - Diarrhoea [Unknown]
  - Pancreatitis [Unknown]
  - Dyspnoea [Unknown]
  - Fatigue [Unknown]
  - Cholelithiasis [Unknown]

NARRATIVE: CASE EVENT DATE: 20111013
